FAERS Safety Report 7579314-2 (Version None)
Quarter: 2011Q2

REPORT INFORMATION
  Report Type: 
  Country: None (occurrence: None)
  Receive Date: 20110628
  Receipt Date: 20110607
  Transmission Date: 20111010
  Serious: No
  Sender: FDA-Public Use
  Company Number: US-BAYER-2011-049761

PATIENT
  Age: 54 Year
  Sex: Male
  Weight: 115 kg

DRUGS (1)
  1. ALEVE (CAPLET) [Suspect]
     Indication: ARTHRALGIA
     Dosage: LOT NUMBER, EXPIRATION DATE AND BOTTLE SIZE NOT REPORTED
     Route: 048
     Dates: start: 20080101

REACTIONS (1)
  - ARTHRALGIA [None]
